FAERS Safety Report 9359918 (Version 1)
Quarter: 2013Q2

REPORT INFORMATION
  Report Type: Spontaneous
  Country: US (occurrence: None)
  Receive Date: 20130608
  Receipt Date: 20130608
  Transmission Date: 20140414
  Serious: No
  Sender: FDA-Public Use
  Company Number: 2012CT000029

PATIENT
  Age: 37 Year
  Sex: Female

DRUGS (8)
  1. KORLYM [Suspect]
     Indication: CUSHING^S SYNDROME
     Route: 048
     Dates: start: 200908
  2. VITAMIN D [Concomitant]
  3. SPIRONOLACTONE [Concomitant]
  4. METFORMIN [Concomitant]
  5. DILTIAZEM [Concomitant]
  6. LABETALOL [Concomitant]
  7. LOSARTAN [Concomitant]
  8. LEVOTHYROXINE [Concomitant]

REACTIONS (2)
  - Insomnia [None]
  - Abnormal dreams [None]
